FAERS Safety Report 6564871-5 (Version None)
Quarter: 2010Q1

REPORT INFORMATION
  Report Type: 
  Country: None (occurrence: None)
  Receive Date: 20100201
  Receipt Date: 20100121
  Transmission Date: 20100710
  Serious: Yes (Other)
  Sender: FDA-Public Use
  Company Number: SE-JNJFOC-20090304058

PATIENT
  Sex: Female

DRUGS (4)
  1. REMICADE [Suspect]
     Indication: CROHN'S DISEASE
     Route: 042
     Dates: start: 20061114
  2. REMICADE [Suspect]
     Route: 042
     Dates: start: 20061114
  3. PULMICORT [Concomitant]
     Indication: ASTHMA
     Route: 055
  4. BRICANYL [Concomitant]
     Indication: ASTHMA
     Route: 055

REACTIONS (3)
  - ABORTION SPONTANEOUS [None]
  - CROHN'S DISEASE [None]
  - DRUG EXPOSURE DURING PREGNANCY [None]
